FAERS Safety Report 6528813-0 (Version None)
Quarter: 2010Q1

REPORT INFORMATION
  Report Type: 
  Country: None (occurrence: None)
  Receive Date: 20100106
  Receipt Date: 20091231
  Transmission Date: 20100710
  Serious: Yes (Death, Hospitalization)
  Sender: FDA-Public Use
  Company Number: US-PURDUE-USA-2009-0040419

PATIENT
  Age: 58 Year
  Sex: Female

DRUGS (2)
  1. MS CONTIN [Suspect]
     Indication: DRUG USE FOR UNKNOWN INDICATION
  2. DASATINIB [Suspect]
     Indication: COLON CANCER
     Dosage: 1820 MG, UNK
     Dates: start: 20090623, end: 20090816

REACTIONS (6)
  - ACUTE RESPIRATORY DISTRESS SYNDROME [None]
  - DEATH [None]
  - MALIGNANT NEOPLASM PROGRESSION [None]
  - METABOLIC ACIDOSIS [None]
  - RENAL FAILURE [None]
  - SEPSIS [None]
